FAERS Safety Report 10287222 (Version 1)
Quarter: 2014Q3

REPORT INFORMATION
  Report Type: Spontaneous
  Country: IN (occurrence: None)
  Receive Date: 20140707
  Receipt Date: 20140707
  Transmission Date: 20150326
  Serious: Yes (Other)
  Sender: FDA-Public Use
  Company Number: VAL_03183_2014

PATIENT
  Age: 41 Year
  Sex: Male

DRUGS (7)
  1. CLONAZEPAM. [Concomitant]
     Active Substance: CLONAZEPAM
  2. FOLIC ACID. [Concomitant]
     Active Substance: FOLIC ACID
  3. ACECLOFENAC [Concomitant]
     Active Substance: ACECLOFENAC
  4. ACYCLOVIR. [Concomitant]
     Active Substance: ACYCLOVIR
  5. CARBAMAZEPINE (CARBAMAZEPINE) [Suspect]
     Active Substance: CARBAMAZEPINE
     Indication: HERPES ZOSTER
  6. MECOBALAMIN [Concomitant]
     Active Substance: METHYLCOBALAMIN
  7. FEXOFENDAINE [Concomitant]

REACTIONS (5)
  - Alanine aminotransferase increased [None]
  - Haemoglobin decreased [None]
  - Medication error [None]
  - Lymphocyte percentage decreased [None]
  - Neutrophil count increased [None]
